FAERS Safety Report 17101055 (Version 4)
Quarter: 2020Q4

REPORT INFORMATION
  Report Type: Spontaneous
  Country: ES (occurrence: ES)
  Receive Date: 20191202
  Receipt Date: 20201210
  Transmission Date: 20210113
  Serious: Yes (Other)
  Sender: FDA-Public Use
  Company Number: ES-OTSUKA-2019_040236

PATIENT
  Age: 41 Year
  Sex: Male

DRUGS (7)
  1. JINARC [Suspect]
     Active Substance: TOLVAPTAN
     Dosage: 15 MG,UNK
     Route: 065
     Dates: start: 20190504, end: 20190522
  2. AMLODIPINE [Concomitant]
     Active Substance: AMLODIPINE BESYLATE
     Indication: PRODUCT USED FOR UNKNOWN INDICATION
     Dosage: UNK
     Route: 065
  3. JINARC [Suspect]
     Active Substance: TOLVAPTAN
     Dosage: 45 MG, (IN MORNING)
     Route: 048
     Dates: start: 20181201
  4. ALLOPURINOL. [Concomitant]
     Active Substance: ALLOPURINOL
     Indication: PRODUCT USED FOR UNKNOWN INDICATION
     Dosage: UNK
     Route: 065
  5. ENALAPRIL [Concomitant]
     Active Substance: ENALAPRIL
     Indication: PRODUCT USED FOR UNKNOWN INDICATION
     Dosage: UNK
     Route: 065
  6. JINARC [Suspect]
     Active Substance: TOLVAPTAN
     Indication: CONGENITAL CYSTIC KIDNEY DISEASE
     Dosage: 45 MG, UNK
     Route: 065
     Dates: start: 20190504, end: 20190522
  7. JINARC [Suspect]
     Active Substance: TOLVAPTAN
     Dosage: 15 MG, (IN EVENEING)
     Route: 048
     Dates: start: 20181201

REACTIONS (2)
  - Rhabdomyolysis [Unknown]
  - Thirst [Unknown]
